FAERS Safety Report 9720932 (Version 2)
Quarter: 2013Q4

REPORT INFORMATION
  Report Type: Spontaneous
  Country: JP (occurrence: JP)
  Receive Date: 20131129
  Receipt Date: 20131219
  Transmission Date: 20140711
  Serious: No
  Sender: FDA-Public Use
  Company Number: JP-BRISTOL-MYERS SQUIBB COMPANY-19859073

PATIENT
  Age: 75 Year
  Sex: Female

DRUGS (8)
  1. METGLUCO [Suspect]
     Indication: DIABETES MELLITUS
     Dosage: REG2:500MG:PO
     Route: 048
     Dates: start: 201304, end: 201309
  2. SITAGLIPTIN PHOSPHATE [Concomitant]
     Route: 048
  3. DONEPEZIL [Concomitant]
     Route: 048
  4. JUVELA N [Concomitant]
  5. LIVALO [Concomitant]
  6. ETHYL LOFLAZEPATE [Concomitant]
  7. VILDAGLIPTIN [Concomitant]
  8. MAGNESIUM OXIDE [Concomitant]

REACTIONS (1)
  - Bradycardia [Recovered/Resolved]
